FAERS Safety Report 5825881-6 (Version None)
Quarter: 2008Q3

REPORT INFORMATION
  Report Type: 
  Country: None (occurrence: None)
  Receive Date: 20080729
  Receipt Date: 20080721
  Transmission Date: 20090109
  Serious: Yes (Hospitalization, Other)
  Sender: FDA-Public Use
  Company Number: MX-AVENTIS-200816682GDDC

PATIENT
  Age: 67 Year
  Sex: Female

DRUGS (7)
  1. ARAVA [Suspect]
     Indication: RHEUMATOID ARTHRITIS
     Route: 048
     Dates: start: 20060801
  2. METHOTREXATE [Concomitant]
     Indication: RHEUMATOID ARTHRITIS
     Dosage: DOSE: 4 TABLETS OF 2.5 MG
     Route: 048
  3. FOLIC ACID [Concomitant]
     Dosage: DOSE: UNK
  4. ENALAPRIL MALEATE [Concomitant]
     Route: 048
  5. ACETAMINOPHEN [Concomitant]
     Indication: RHEUMATOID ARTHRITIS
     Dosage: DOSE: UNK
  6. TRADOL [Concomitant]
     Indication: RHEUMATOID ARTHRITIS
     Route: 048
  7. NEO PERCODAN [Concomitant]
     Indication: RHEUMATOID ARTHRITIS
     Dosage: DOSE: 2 TABLETS 500 MG/65 MG
     Route: 048

REACTIONS (3)
  - DEEP VEIN THROMBOSIS [None]
  - PSEUDOMONAS INFECTION [None]
  - SKIN ULCER [None]
